FAERS Safety Report 15618725 (Version 9)
Quarter: 2020Q2

REPORT INFORMATION
  Report Type: Report from Study
  Country: US (occurrence: US)
  Receive Date: 20181114
  Receipt Date: 20200523
  Transmission Date: 20200713
  Serious: Yes (Other)
  Sender: FDA-Public Use
  Company Number: PHEH2018US047586

PATIENT
  Age: 41 Year
  Sex: Female

DRUGS (2)
  1. GILENYA [Suspect]
     Active Substance: FINGOLIMOD HYDROCHLORIDE
     Indication: MULTIPLE SCLEROSIS
     Dosage: 0.5 MG, QOD
     Route: 048
     Dates: start: 20180216
  2. AMPYRA [Suspect]
     Active Substance: DALFAMPRIDINE
     Indication: PRODUCT USED FOR UNKNOWN INDICATION
     Dosage: UNK
     Route: 065

REACTIONS (17)
  - Multiple sclerosis relapse [Recovering/Resolving]
  - Microsleep [Unknown]
  - Off label use [Unknown]
  - Blood pressure systolic increased [Unknown]
  - JC polyomavirus test positive [Unknown]
  - Pain in extremity [Unknown]
  - Muscle spasms [Unknown]
  - Hypoaesthesia [Recovering/Resolving]
  - Asthenia [Not Recovered/Not Resolved]
  - Vitamin D decreased [Unknown]
  - Lymphocyte count decreased [Unknown]
  - Nasopharyngitis [Recovering/Resolving]
  - Paraesthesia [Recovering/Resolving]
  - Central nervous system lesion [Not Recovered/Not Resolved]
  - Cerebrovascular accident [Recovering/Resolving]
  - Sinus disorder [Recovered/Resolved]
  - Peroneal nerve palsy [Unknown]

NARRATIVE: CASE EVENT DATE: 20200314
